FAERS Safety Report 7415017-2 (Version None)
Quarter: 2011Q2

REPORT INFORMATION
  Report Type: 
  Country: None (occurrence: None)
  Receive Date: 20110414
  Receipt Date: 20110405
  Transmission Date: 20111010
  Serious: Yes (Other)
  Sender: FDA-Public Use
  Company Number: CA-ROCHE-751749

PATIENT
  Sex: Female
  Weight: 111 kg

DRUGS (13)
  1. ARAVA [Concomitant]
  2. TOCILIZUMAB [Suspect]
     Indication: RHEUMATOID ARTHRITIS
     Dosage: FORM: INFUSION
     Route: 042
     Dates: start: 20101208, end: 20101208
  3. TOCILIZUMAB [Suspect]
     Route: 042
     Dates: start: 20110324
  4. PANTOLOC [Concomitant]
  5. CLONAZEPAM [Concomitant]
  6. DICLOFENAC [Concomitant]
  7. CARDIZEM [Concomitant]
  8. CARDIZEM [Concomitant]
     Dosage: DOSAGE INCREASED
  9. AVAPRO [Concomitant]
  10. CIPRALEX [Concomitant]
  11. OMEGA 3 PLUS [Concomitant]
     Dosage: DRUG REPORTED: OMEGA 3
  12. TOCILIZUMAB [Suspect]
     Route: 042
     Dates: start: 20110207, end: 20110207
  13. CALCIUM [Concomitant]

REACTIONS (3)
  - PAROTID GLAND ENLARGEMENT [None]
  - NASOPHARYNGITIS [None]
  - BLOOD PRESSURE INCREASED [None]
